FAERS Safety Report 10081889 (Version 1)
Quarter: 2014Q2

REPORT INFORMATION
  Report Type: Spontaneous
  Country: US (occurrence: US)
  Receive Date: 20140416
  Receipt Date: 20140416
  Transmission Date: 20141212
  Serious: Yes (Other)
  Sender: FDA-Public Use
  Company Number: US-BAYER-2014-054232

PATIENT
  Age: 82 Year
  Sex: Female
  Weight: 72.56 kg

DRUGS (6)
  1. ALEVE TABLET [Suspect]
     Indication: ARTHRALGIA
     Dosage: 1 DF, BID
     Route: 048
     Dates: start: 20140215, end: 20140408
  2. LOSARTAN [Concomitant]
  3. ATENOLOL [Concomitant]
  4. CITRACAL SUGAR-FREE SOFT CHEW UNCOATED [Concomitant]
  5. SIMVASTATIN [Concomitant]
  6. IBUPROFEN [Concomitant]
     Dosage: UNK
     Dates: start: 2004, end: 201402

REACTIONS (2)
  - Colitis [Not Recovered/Not Resolved]
  - Incorrect drug administration duration [None]
